FAERS Safety Report 24585046 (Version 1)
Quarter: 2024Q4

REPORT INFORMATION
  Report Type: Spontaneous
  Country: US (occurrence: US)
  Receive Date: 20241106
  Receipt Date: 20241106
  Transmission Date: 20250114
  Serious: Yes (Life-Threatening)
  Sender: AMARIN
  Company Number: US-Amarin Pharma  Inc-2024AMR000514

PATIENT
  Age: 78 Year
  Sex: Male

DRUGS (3)
  1. VASCEPA [Suspect]
     Active Substance: ICOSAPENT ETHYL
     Indication: Blood triglycerides
     Dates: start: 2014
  2. VASCEPA [Suspect]
     Active Substance: ICOSAPENT ETHYL
  3. PRAVASTATIN SODIUM [Concomitant]
     Active Substance: PRAVASTATIN SODIUM
     Indication: Product used for unknown indication

REACTIONS (6)
  - Neoplasm malignant [Unknown]
  - Prostatic mass [Unknown]
  - Inappropriate schedule of product administration [Unknown]
  - Poor quality product administered [Unknown]
  - Product physical issue [Unknown]
  - Product contamination [Unknown]

NARRATIVE: CASE EVENT DATE: 20190101
